FAERS Safety Report 7893477-0 (Version None)
Quarter: 2011Q4

REPORT INFORMATION
  Report Type: 
  Country: None (occurrence: None)
  Receive Date: 20111104
  Receipt Date: 20111028
  Transmission Date: 20120403
  Serious: Yes (Hospitalization)
  Sender: FDA-Public Use
  Company Number: US-US-EMD SERONO, INC.-232156J10USA

PATIENT
  Sex: Female

DRUGS (8)
  1. CYMBALTA [Concomitant]
     Indication: MUSCULOSKELETAL STIFFNESS
  2. VITAMIN B-12 [Concomitant]
     Route: 048
  3. GABAPENTIN [Concomitant]
     Indication: NEURALGIA
  4. TIZANIDINE HCL [Concomitant]
     Indication: MUSCLE SPASTICITY
  5. ABILIFY [Concomitant]
     Indication: DEPRESSION
  6. REBIF [Suspect]
     Indication: RELAPSING-REMITTING MULTIPLE SCLEROSIS
     Route: 058
     Dates: start: 20100125, end: 20100301
  7. CYMBALTA [Concomitant]
     Indication: MUSCLE SPASTICITY
  8. PROVIGIL [Concomitant]
     Indication: FATIGUE

REACTIONS (1)
  - MULTIPLE SCLEROSIS [None]
